FAERS Safety Report 6433596-9 (Version None)
Quarter: 2009Q4

REPORT INFORMATION
  Report Type: 
  Country: None (occurrence: None)
  Receive Date: 20091110
  Receipt Date: 20091030
  Transmission Date: 20100525
  Serious: Yes (Other)
  Sender: FDA-Public Use
  Company Number: US-JNJFOC-20090906288

PATIENT
  Sex: Female
  Weight: 70.31 kg

DRUGS (11)
  1. REMICADE [Suspect]
     Indication: RHEUMATOID ARTHRITIS
     Route: 042
     Dates: start: 20050223, end: 20090730
  2. METHOTREXATE SODIUM [Concomitant]
     Indication: RHEUMATOID ARTHRITIS
  3. PREDNISONE [Concomitant]
     Indication: RHEUMATOID ARTHRITIS
  4. FOLIC ACID [Concomitant]
     Indication: MEDICAL DIET
  5. PLAVIX [Concomitant]
  6. LIPITOR [Concomitant]
     Indication: BLOOD CHOLESTEROL INCREASED
  7. VERAPAMIL [Concomitant]
     Indication: ATRIAL FIBRILLATION
  8. ATENOLOL [Concomitant]
  9. ACTONEL [Concomitant]
  10. CALCIUM [Concomitant]
     Indication: MEDICAL DIET
  11. VITAMIN D [Concomitant]
     Indication: MEDICAL DIET

REACTIONS (1)
  - MALIGNANT MELANOMA [None]
